FAERS Safety Report 10520256 (Version 3)
Quarter: 2015Q2

REPORT INFORMATION
  Report Type: Report from Study
  Country: US (occurrence: US)
  Receive Date: 20141015
  Receipt Date: 20150410
  Transmission Date: 20150821
  Serious: Yes (Hospitalization)
  Sender: FDA-Public Use
  Company Number: US-GLAXOSMITHKLINE-A1065648A

PATIENT
  Age: 67 Year
  Sex: Female

DRUGS (2)
  1. GSK2141795 CAPSULE [Suspect]
     Active Substance: UPROSERTIB
     Indication: NEOPLASM
     Dosage: 50 MG, QD
     Route: 048
     Dates: start: 20131104, end: 20140227
  2. TRAMETINIB TABLET [Suspect]
     Active Substance: TRAMETINIB
     Indication: NEOPLASM
     Dosage: 1.5 MG, QD
     Route: 048
     Dates: start: 20131104, end: 20141204

REACTIONS (1)
  - Dyspnoea [Recovered/Resolved]

NARRATIVE: CASE EVENT DATE: 20140315
